FAERS Safety Report 8103247-6 (Version None)
Quarter: 2012Q1

REPORT INFORMATION
  Report Type: 
  Country: None (occurrence: None)
  Receive Date: 20120201
  Receipt Date: 20120118
  Transmission Date: 20120608
  Serious: Yes (Disabling, Other)
  Sender: FDA-Public Use
  Company Number: FI-MYLANLABS-2012S1001753

PATIENT
  Age: 38 Year
  Sex: Male

DRUGS (3)
  1. VENLAFAXINE [Suspect]
     Indication: ABNORMAL BEHAVIOUR
  2. OLANZAPINE [Suspect]
  3. OLANZAPINE [Suspect]
     Indication: ABNORMAL BEHAVIOUR

REACTIONS (4)
  - AGGRESSION [None]
  - POSTURE ABNORMAL [None]
  - DRUG INEFFECTIVE [None]
  - COGWHEEL RIGIDITY [None]
